FAERS Safety Report 4649001-9 (Version None)
Quarter: 2005Q2

REPORT INFORMATION
  Report Type: 
  Country: None (occurrence: None)
  Receive Date: 20050429
  Receipt Date: 20050408
  Transmission Date: 20051028
  Serious: Yes (Death)
  Sender: FDA-Public Use
  Company Number: JP-ROCHE-401527

PATIENT
  Age: 58 Year
  Sex: Female

DRUGS (10)
  1. VESANOID [Suspect]
     Indication: ACUTE PROMYELOCYTIC LEUKAEMIA
     Route: 048
     Dates: start: 20050329, end: 20050407
  2. CYLOCIDE [Concomitant]
     Route: 041
     Dates: start: 20050329, end: 20050404
  3. IDAMYCIN [Concomitant]
     Route: 041
     Dates: start: 20050329, end: 20050331
  4. FOY [Concomitant]
     Route: 041
     Dates: start: 20050328, end: 20050405
  5. CRAVIT [Concomitant]
     Dosage: ORAL FORMULATION (NOT OTHERWISE SPECIFIED).
     Route: 048
     Dates: start: 20050328, end: 20050411
  6. FLUCONAZOLE [Concomitant]
     Route: 048
     Dates: start: 20050328, end: 20050411
  7. TAZOCIN [Concomitant]
     Route: 041
     Dates: start: 20050328, end: 20050401
  8. FIRSTCIN [Concomitant]
     Route: 041
     Dates: start: 20050402, end: 20050405
  9. MEROPEN [Concomitant]
     Route: 041
     Dates: start: 20050405, end: 20050411
  10. MINOCYCLINE HCL [Concomitant]
     Route: 041
     Dates: start: 20050407, end: 20050410

REACTIONS (9)
  - CEREBRAL VENOUS THROMBOSIS [None]
  - CULTURE STOOL POSITIVE [None]
  - DIARRHOEA [None]
  - INTRACRANIAL VENOUS SINUS THROMBOSIS [None]
  - LOSS OF CONSCIOUSNESS [None]
  - PARALYSIS [None]
  - RHEUMATOID ARTHRITIS [None]
  - STAPHYLOCOCCAL INFECTION [None]
  - WHITE BLOOD CELL COUNT INCREASED [None]
